FAERS Safety Report 6693258-X (Version None)
Quarter: 2010Q2

REPORT INFORMATION
  Report Type: 
  Country: None (occurrence: None)
  Receive Date: 20100422
  Receipt Date: 20100416
  Transmission Date: 20101027
  Serious: Yes (Disabling, Other)
  Sender: FDA-Public Use
  Company Number: US-MERCK-0907USA00079

PATIENT
  Age: 55 Year
  Sex: Female
  Weight: 67 kg

DRUGS (6)
  1. FOSAMAX [Suspect]
     Indication: OSTEOPENIA
     Route: 048
     Dates: start: 20060501, end: 20080301
  2. FOSAMAX [Suspect]
     Route: 048
     Dates: start: 20080301, end: 20080701
  3. FOSAMAX [Suspect]
     Indication: OSTEOPOROSIS
     Route: 048
     Dates: start: 20060501, end: 20080301
  4. FOSAMAX [Suspect]
     Route: 048
     Dates: start: 20080301, end: 20080701
  5. FOSAMAX PLUS D [Suspect]
     Indication: OSTEOPENIA
     Route: 048
     Dates: start: 20060501, end: 20080501
  6. HORMONES (UNSPECIFIED) [Concomitant]
     Route: 065
     Dates: start: 19930101

REACTIONS (12)
  - ABDOMINOPLASTY [None]
  - ABSCESS [None]
  - ACIDOSIS [None]
  - ADVERSE DRUG REACTION [None]
  - BONE DENSITY DECREASED [None]
  - BRUXISM [None]
  - DRY MOUTH [None]
  - IMPAIRED HEALING [None]
  - INAPPROPRIATE SCHEDULE OF DRUG ADMINISTRATION [None]
  - OSTEONECROSIS [None]
  - RENAL DISORDER [None]
  - URINARY TRACT INFECTION [None]
